FAERS Safety Report 18974016 (Version 1)
Quarter: 2021Q1

REPORT INFORMATION
  Report Type: Spontaneous
  Country: DE (occurrence: DE)
  Receive Date: 20210305
  Receipt Date: 20210305
  Transmission Date: 20210420
  Serious: Yes (Congenital Anomaly)
  Sender: FDA-Public Use
  Company Number: DE-BAYER-2021-093365

PATIENT
  Age: 0 Year
  Sex: Female
  Weight: 3.72 kg

DRUGS (5)
  1. INFLUVAC TETRA [Concomitant]
     Active Substance: INFLUENZA VIRUS VACCINE QUADRIVALENT TYPE A+B
     Indication: IMMUNISATION
     Dosage: 3 TRIMESTER, 33.6. ? 33.6. GESTATIONAL WEEK
     Route: 064
     Dates: start: 20200911, end: 20200911
  2. MOMETASONE [Concomitant]
     Active Substance: MOMETASONE
     Indication: SEASONAL ALLERGY
     Dosage: 1 TRIMESTER, 0. ? 39.5. GESTATIONAL WEEK
     Route: 064
  3. FLUTICASONE;VILANTEROL [Suspect]
     Active Substance: FLUTICASONE FUROATE\VILANTEROL TRIFENATATE
     Indication: ASTHMA
     Dosage: 92 ?G/D (ALL 1?2 DAYS) / 22 ?G/D (ALL 1?2 DAYS), 1 TRIMESTER, 0. ? 39.5. GESTATIONAL WEEK
     Route: 064
  4. CLARITINE 10 MG [Suspect]
     Active Substance: LORATADINE
     Indication: SEASONAL ALLERGY
     Dosage: GESTATION PERIOD: 1 TRIMESTER (0?39.5 WEEK)
     Route: 064
  5. XYLOMETAZOLINE HYDROCHLORIDE [Concomitant]
     Active Substance: XYLOMETAZOLINE HYDROCHLORIDE
     Indication: RHINITIS ALLERGIC
     Dosage: 1 TRIMESTER, 0. ? 39.5. GESTATIONAL WEEK
     Route: 064
     Dates: start: 20200118, end: 20201022

REACTIONS (3)
  - Ventricular septal defect [Unknown]
  - Foetal exposure during pregnancy [Unknown]
  - Atrial septal defect [Unknown]
